FAERS Safety Report 23557368 (Version 1)
Quarter: 2024Q1

REPORT INFORMATION
  Report Type: Spontaneous
  Country: US (occurrence: US)
  Receive Date: 20240223
  Receipt Date: 20240223
  Transmission Date: 20240410
  Serious: Yes (Death, Other)
  Sender: FDA-Public Use
  Company Number: US-SPECGX-T202400631

PATIENT
  Age: 49 Year
  Sex: Male

DRUGS (1)
  1. FENTANYL CITRATE [Suspect]
     Active Substance: FENTANYL CITRATE
     Indication: Product used for unknown indication
     Dosage: UNK
     Route: 065

REACTIONS (9)
  - Toxicity to various agents [Fatal]
  - Hepatotoxicity [Unknown]
  - Endotracheal intubation [Unknown]
  - Resuscitation [Unknown]
  - Respiratory depression [Unknown]
  - Hyperreflexia [Unknown]
  - Clonus [Unknown]
  - Metabolic acidosis [Unknown]
  - Tremor [Unknown]
